FAERS Safety Report 6409765-0 (Version None)
Quarter: 2009Q4

REPORT INFORMATION
  Report Type: 
  Country: None (occurrence: None)
  Receive Date: 20091022
  Receipt Date: 20091020
  Transmission Date: 20100525
  Serious: Yes (Hospitalization, Other)
  Sender: FDA-Public Use
  Company Number: GB-ROXANE LABORATORIES, INC.-2009-RO-01071RO

PATIENT
  Age: 8 Year
  Sex: Female

DRUGS (19)
  1. AZATHIOPRINE [Suspect]
     Indication: PROPHYLAXIS AGAINST TRANSPLANT REJECTION
     Dates: start: 19950101
  2. CYCLOPHOSPHAMIDE [Suspect]
     Indication: EPSTEIN-BARR VIRUS ASSOCIATED LYMPHOPROLIFERATIVE DISORDER
  3. CYCLOPHOSPHAMIDE [Suspect]
  4. CYCLOPHOSPHAMIDE [Suspect]
  5. CYCLOPHOSPHAMIDE [Suspect]
  6. PREDNISONE [Suspect]
     Indication: EPSTEIN-BARR VIRUS ASSOCIATED LYMPHOPROLIFERATIVE DISORDER
  7. PREDNISONE [Suspect]
  8. CYCLOSPORINE [Suspect]
     Indication: PROPHYLAXIS AGAINST TRANSPLANT REJECTION
     Dates: start: 19950101
  9. CYCLOSPORINE [Suspect]
  10. CYCLOSPORINE [Suspect]
  11. VINCRISTINE [Suspect]
     Indication: EPSTEIN-BARR VIRUS ASSOCIATED LYMPHOPROLIFERATIVE DISORDER
  12. VINCRISTINE [Suspect]
  13. VINCRISTINE [Suspect]
  14. RITUXIMAB [Suspect]
     Indication: EPSTEIN-BARR VIRUS ASSOCIATED LYMPHOPROLIFERATIVE DISORDER
  15. RITUXIMAB [Suspect]
  16. AUTOLOGOUS EBV-SPECIFIC CYTOTOXIC T LYMPHOCYTES [Suspect]
     Indication: EPSTEIN-BARR VIRUS ASSOCIATED LYMPHOPROLIFERATIVE DISORDER
     Dates: start: 20030901, end: 20040101
  17. AUTOLOGOUS EBV-SPECIFIC CYTOTOXIC T LYMPHOCYTES [Suspect]
     Dates: start: 20041101
  18. ADRIAMYCIN PFS [Suspect]
     Indication: EPSTEIN-BARR VIRUS ASSOCIATED LYMPHOPROLIFERATIVE DISORDER
  19. PREDNISOLONE [Suspect]
     Indication: EPSTEIN-BARR VIRUS ASSOCIATED LYMPHOPROLIFERATIVE DISORDER

REACTIONS (8)
  - DISEASE RECURRENCE [None]
  - DRUG TOLERANCE DECREASED [None]
  - EPSTEIN-BARR VIRUS ASSOCIATED LYMPHOPROLIFERATIVE DISORDER [None]
  - LYMPHADENOPATHY [None]
  - OBSTRUCTIVE AIRWAYS DISORDER [None]
  - REMOVAL OF TRANSPLANTED ORGAN [None]
  - RESPIRATORY DISTRESS [None]
  - SPLENOMEGALY [None]
